FAERS Safety Report 5380840-5 (Version None)
Quarter: 2007Q3

REPORT INFORMATION
  Report Type: 
  Country: None (occurrence: None)
  Receive Date: 20070706
  Receipt Date: 20070629
  Transmission Date: 20080115
  Serious: Yes (Death)
  Sender: FDA-Public Use
  Company Number: US-ASTRAZENECA-2002UW09532

PATIENT
  Age: 7477 Day
  Sex: Male
  Weight: 72.7 kg

DRUGS (9)
  1. SEROQUEL [Suspect]
     Route: 048
     Dates: start: 20020329, end: 20020331
  2. SEROQUEL [Suspect]
     Route: 048
     Dates: start: 20020327, end: 20020328
  3. SEROQUEL [Suspect]
     Route: 048
     Dates: start: 20020325, end: 20020326
  4. RISPERDAL [Concomitant]
     Dates: start: 20020329, end: 20020331
  5. RISPERDAL [Concomitant]
     Dates: start: 20020327, end: 20020328
  6. RISPERDAL [Concomitant]
     Dates: start: 20020325, end: 20020326
  7. RISPERDAL [Concomitant]
     Dates: start: 20020324, end: 20020324
  8. CELEXA [Concomitant]
     Dates: start: 20020324, end: 20020401
  9. CELEXA [Concomitant]

REACTIONS (5)
  - ARRHYTHMIA [None]
  - CONVULSION [None]
  - CYANOSIS [None]
  - DEATH [None]
  - ELECTROMECHANICAL DISSOCIATION [None]
